FAERS Safety Report 17196460 (Version 1)
Quarter: 2019Q4

REPORT INFORMATION
  Report Type: Report from Study
  Country: None (occurrence: US)
  Receive Date: 20191224
  Receipt Date: 20191224
  Transmission Date: 20200122
  Serious: Yes (Other)
  Sender: FDA-Public Use
  Company Number: US-ABBVIE-19K-163-3167811-00

PATIENT
  Sex: Male

DRUGS (1)
  1. IMBRUVICA [Suspect]
     Active Substance: IBRUTINIB
     Indication: RENAL CANCER
     Dosage: 420 MG, QD
     Route: 048
     Dates: start: 20190225

REACTIONS (2)
  - Surgery [Unknown]
  - Eye operation [Unknown]
